FAERS Safety Report 7289119-8 (Version None)
Quarter: 2011Q1

REPORT INFORMATION
  Report Type: 
  Country: None (occurrence: None)
  Receive Date: 20110211
  Receipt Date: 20110203
  Transmission Date: 20110831
  Serious: Yes (Hospitalization, Other)
  Sender: FDA-Public Use
  Company Number: US-SANOFI-AVENTIS-2011SA007409

PATIENT
  Sex: Male

DRUGS (2)
  1. PLAVIX [Suspect]
     Route: 048
  2. PLAVIX [Suspect]
     Dosage: STOPPED FOR 15 DAYS (RESTARTED BEGINNING OF FEB-2011)
     Route: 048
     Dates: start: 20080101

REACTIONS (3)
  - POST PROCEDURAL HAEMORRHAGE [None]
  - BENIGN PANCREATIC NEOPLASM [None]
  - GASTRIC HAEMORRHAGE [None]
